FAERS Safety Report 12600105 (Version 2)
Quarter: 2016Q3

REPORT INFORMATION
  Report Type: Spontaneous
  Country: CH (occurrence: AU)
  Receive Date: 20160727
  Receipt Date: 20160906
  Transmission Date: 20161109
  Serious: Yes (Other)
  Sender: FDA-Public Use
  Company Number: CH-LPDUSPRD-20160634

PATIENT
  Age: 43 Year
  Sex: Female

DRUGS (2)
  1. FERINJECT [Suspect]
     Active Substance: FERRIC CARBOXYMALTOSE
     Dosage: 500 MG
     Route: 041
     Dates: start: 20160714, end: 20160714
  2. MEFENAMIC-ACID [Concomitant]
     Active Substance: MEFENAMIC ACID

REACTIONS (7)
  - Nausea [Unknown]
  - Exophthalmos [Unknown]
  - Hypertension [Unknown]
  - Vomiting [Unknown]
  - Dizziness [Unknown]
  - Jaundice [Unknown]
  - Swelling [Unknown]

NARRATIVE: CASE EVENT DATE: 20160714
